FAERS Safety Report 25344140 (Version 1)
Quarter: 2025Q2

REPORT INFORMATION
  Report Type: Spontaneous
  Country: US (occurrence: US)
  Receive Date: 20250521
  Receipt Date: 20250521
  Transmission Date: 20250717
  Serious: No
  Sender: SANOFI AVENTIS
  Company Number: US-SA-2025SA144518

PATIENT
  Age: 4 Year
  Sex: Male

DRUGS (1)
  1. DUPIXENT [Suspect]
     Active Substance: DUPILUMAB
     Indication: Eczema
     Dosage: 300 MG, Q4W
     Route: 058
     Dates: start: 202411

REACTIONS (4)
  - Eyelid rash [Recovered/Resolved]
  - Alopecia [Recovered/Resolved]
  - Fungal infection [Not Recovered/Not Resolved]
  - Ocular hyperaemia [Recovered/Resolved]

NARRATIVE: CASE EVENT DATE: 20241101
